FAERS Safety Report 18688538 (Version 2)
Quarter: 2021Q1

REPORT INFORMATION
  Report Type: Report from Study
  Country: US (occurrence: US)
  Receive Date: 20201231
  Receipt Date: 20210105
  Transmission Date: 20210419
  Serious: No
  Sender: FDA-Public Use
  Company Number: US-AGIOS-2012US02344

PATIENT

DRUGS (1)
  1. TIBSOVO [Suspect]
     Active Substance: IVOSIDENIB
     Indication: CHOLANGIOCARCINOMA
     Dosage: 250MG, 2 TABLETS (500MG) DAILY
     Route: 048
     Dates: start: 20201025

REACTIONS (7)
  - Malaise [Unknown]
  - Gait disturbance [Unknown]
  - Blood potassium decreased [Unknown]
  - Off label use [Unknown]
  - Paraesthesia [Unknown]
  - Peripheral swelling [Unknown]
  - Urticaria [Unknown]

NARRATIVE: CASE EVENT DATE: 20201025
